FAERS Safety Report 19737160 (Version 1)
Quarter: 2021Q3

REPORT INFORMATION
  Report Type: Spontaneous
  Country: US (occurrence: US)
  Receive Date: 20210824
  Receipt Date: 20210824
  Transmission Date: 20211014
  Serious: No
  Sender: FDA-Public Use
  Company Number: US-CADILA HEALTHCARE LIMITED-US-ZYDUS-068299

PATIENT

DRUGS (2)
  1. BOSENTAN 125 MG TABLETS [Suspect]
     Active Substance: BOSENTAN
     Indication: PULMONARY ARTERIAL HYPERTENSION
     Dosage: 125 MILLIGRAM, BID
     Route: 048
     Dates: start: 20190617
  2. OFEV [Concomitant]
     Active Substance: NINTEDANIB
     Indication: PRODUCT USED FOR UNKNOWN INDICATION
     Dosage: UNK
     Route: 065

REACTIONS (3)
  - Dyspepsia [Unknown]
  - Eructation [Unknown]
  - Diarrhoea [Unknown]
